FAERS Safety Report 9205369 (Version 3)
Quarter: 2013Q2

REPORT INFORMATION
  Report Type: Report from Study
  Country: US (occurrence: US)
  Receive Date: 20130402
  Receipt Date: 20130503
  Transmission Date: 20140414
  Serious: Yes (Death, Other)
  Sender: FDA-Public Use
  Company Number: US-PFIZER INC-2013098115

PATIENT
  Age: 32 Year
  Sex: Female
  Weight: 85 kg

DRUGS (8)
  1. PD-332,991 [Suspect]
     Indication: ACUTE MYELOID LEUKAEMIA RECURRENT
     Dosage: 100 MG, ONCE DAILY FOR 3 DAYS
     Route: 048
     Dates: start: 20130205, end: 20130207
  2. PD-332,991 [Suspect]
     Dosage: 25 MG, ONCE DAILY FOR 3 DAYS
     Route: 048
     Dates: start: 20130205, end: 20130207
  3. CYTARABINE [Suspect]
     Indication: ACUTE MYELOID LEUKAEMIA RECURRENT
     Dosage: 1300 MG, CYCLIC (DAILY, ON DAYS 6-8)
     Route: 042
     Dates: start: 20130210, end: 20130210
  4. CYTARABINE [Suspect]
     Dosage: 1300 MG, CYCLIC (DAILY, ON DAYS 6-8)
     Route: 042
     Dates: start: 20130211, end: 20130211
  5. CYTARABINE [Suspect]
     Dosage: 1300 MG, CYCLIC (DAILY, ON DAYS 6-8)
     Route: 042
     Dates: start: 20130212, end: 20130212
  6. MITOXANTRONE HCL [Suspect]
     Indication: ACUTE MYELOID LEUKAEMIA RECURRENT
     Dosage: 39 MG, CYCLIC (ON DAY 9)
     Route: 042
     Dates: start: 20130213
  7. ETHINYL ESTRADIOL/NORGESTREL [Suspect]
     Indication: MENSTRUAL CYCLE MANAGEMENT
     Dosage: 0.03MG/0.3MG ONE TAB PO Q DAY
     Route: 048
     Dates: start: 20130206, end: 20130214
  8. ETHINYL ESTRADIOL/NORGESTREL [Suspect]
     Dosage: 0.03MG/0.3MG TWO TABS PO Q DAY
     Route: 048
     Dates: start: 20130215, end: 20130304

REACTIONS (3)
  - Bone marrow failure [Fatal]
  - Blood bilirubin increased [Not Recovered/Not Resolved]
  - Pneumonia fungal [None]
